FAERS Safety Report 25825291 (Version 1)
Quarter: 2025Q3

REPORT INFORMATION
  Report Type: Spontaneous
  Country: EU (occurrence: EU)
  Receive Date: 20250919
  Receipt Date: 20250919
  Transmission Date: 20251021
  Serious: Yes (Hospitalization)
  Sender: ALEXION PHARMACEUTICALS
  Company Number: EU-ASTRAZENECA-202509GLO016106ES

PATIENT
  Age: 75 Year
  Sex: Male

DRUGS (9)
  1. OMEPRAZOLE [Suspect]
     Active Substance: OMEPRAZOLE
     Indication: Gastritis
     Dosage: 20 MILLIGRAM, QD
     Dates: start: 20250516, end: 20250630
  2. CEFTRIAXONE [Suspect]
     Active Substance: CEFTRIAXONE
     Indication: Arthritis bacterial
     Dosage: 2 GRAM, Q8H
     Dates: start: 20250527, end: 20250617
  3. CEFTAZIDIME [Suspect]
     Active Substance: CEFTAZIDIME
     Indication: Osteomyelitis chronic
     Dosage: 2 GRAM, Q8H
     Dates: start: 20250617, end: 20250630
  4. MEROPENEM [Concomitant]
     Active Substance: MEROPENEM
     Route: 065
  5. TEICOPLANIN [Concomitant]
     Active Substance: TEICOPLANIN
     Route: 065
  6. DAPTOMYCIN [Concomitant]
     Active Substance: DAPTOMYCIN
     Route: 065
  7. ANIDULAFUNGIN [Concomitant]
     Active Substance: ANIDULAFUNGIN
     Route: 065
  8. DALBAVANCIN [Concomitant]
     Active Substance: DALBAVANCIN
     Route: 065
  9. NOREPINEPHRINE BITARTRATE [Concomitant]
     Active Substance: NOREPINEPHRINE BITARTRATE
     Route: 065

REACTIONS (2)
  - Tubulointerstitial nephritis [Recovered/Resolved]
  - Eosinophilia [Recovered/Resolved]

NARRATIVE: CASE EVENT DATE: 20250606
